FAERS Safety Report 17725043 (Version 1)
Quarter: 2020Q2

REPORT INFORMATION
  Report Type: Spontaneous
  Country: US (occurrence: US)
  Receive Date: 20200429
  Receipt Date: 20200429
  Transmission Date: 20200714
  Serious: No
  Sender: FDA-Public Use
  Company Number: None

PATIENT
  Sex: Female

DRUGS (2)
  1. EMGLALITY [Concomitant]
     Dates: start: 20200306
  2. EMGALITY [Suspect]
     Active Substance: GALCANEZUMAB-GNLM

REACTIONS (2)
  - Uveitis [None]
  - Vision blurred [None]
